FAERS Safety Report 7979682-3 (Version None)
Quarter: 2011Q4

REPORT INFORMATION
  Report Type: 
  Country: None (occurrence: None)
  Receive Date: 20111214
  Receipt Date: 20111206
  Transmission Date: 20120403
  Serious: Yes (Other)
  Sender: FDA-Public Use
  Company Number: JP-BRISTOL-MYERS SQUIBB COMPANY-16275174

PATIENT
  Age: 36 Year
  Sex: Female

DRUGS (2)
  1. TAXOL [Suspect]
     Indication: UTERINE CANCER
     Route: 042
  2. CARBOPLATIN [Suspect]
     Indication: UTERINE CANCER

REACTIONS (1)
  - AORTIC THROMBOSIS [None]
